FAERS Safety Report 7286224-7 (Version None)
Quarter: 2011Q1

REPORT INFORMATION
  Report Type: 
  Country: None (occurrence: None)
  Receive Date: 20110210
  Receipt Date: 20110131
  Transmission Date: 20110831
  Serious: Yes (Other)
  Sender: FDA-Public Use
  Company Number: PHHY2009CA50081

PATIENT
  Sex: Female

DRUGS (4)
  1. VITAMIN D [Concomitant]
  2. NEXIUM [Concomitant]
     Dosage: 40 MG
  3. ACLASTA [Suspect]
     Indication: OSTEOPOROSIS
     Dosage: 5 MG
     Route: 042
     Dates: start: 20091111
  4. CALCIUM [Concomitant]
     Dosage: 500 MG, BID

REACTIONS (14)
  - VISUAL IMPAIRMENT [None]
  - HEADACHE [None]
  - RASH [None]
  - CHILLS [None]
  - ACTIVITIES OF DAILY LIVING IMPAIRED [None]
  - EYE IRRITATION [None]
  - CEREBROVASCULAR ACCIDENT [None]
  - INFUSION SITE RASH [None]
  - LACRIMATION INCREASED [None]
  - TUNNEL VISION [None]
  - VISUAL ACUITY REDUCED [None]
  - VISION BLURRED [None]
  - SKIN DISORDER [None]
  - DRUG INTOLERANCE [None]
